FAERS Safety Report 9243332 (Version 1)
Quarter: 2013Q2

REPORT INFORMATION
  Report Type: Spontaneous
  Country: AU (occurrence: AU)
  Receive Date: 20130420
  Receipt Date: 20130420
  Transmission Date: 20140414
  Serious: Yes (Hospitalization)
  Sender: FDA-Public Use
  Company Number: AU-B.I. PHARMACEUTICALS,INC./RIDGEFIELD-2013-AU-00448AU

PATIENT
  Age: 70 Year
  Sex: Male

DRUGS (9)
  1. PRADAXA [Suspect]
     Indication: ATRIAL FIBRILLATION
     Dosage: 300 MG
     Dates: start: 20110812, end: 20130308
  2. DIABEX [Concomitant]
  3. CITALOPRAM [Concomitant]
  4. FRUSEMIDE [Concomitant]
  5. GABAPENTIN [Concomitant]
  6. METOPROLOL [Concomitant]
  7. THYROXIN [Concomitant]
  8. OXYCODON [Concomitant]
  9. SIMVASTATIN [Concomitant]

REACTIONS (3)
  - Fall [Recovered/Resolved]
  - Cognitive disorder [Recovered/Resolved]
  - Coagulation test abnormal [Recovered/Resolved]
